FAERS Safety Report 5615012-X (Version None)
Quarter: 2008Q1

REPORT INFORMATION
  Report Type: 
  Country: None (occurrence: None)
  Receive Date: 20080206
  Receipt Date: 20080125
  Transmission Date: 20080703
  Serious: Yes (Other)
  Sender: FDA-Public Use
  Company Number: ES-TYCO HEALTHCARE/MALLINCKRODT-T200800098

PATIENT

DRUGS (9)
  1. ANAFRANIL CAP [Suspect]
     Indication: DEPRESSION
     Dosage: 75 MG, UNK
  2. VENLAFAXINE HCL [Concomitant]
     Dosage: 150 MG, QD
  3. MIRTAZAPINE [Concomitant]
     Dosage: 30 MG, QD
  4. RISPERIDONE [Concomitant]
     Dosage: 3 MG, QD
  5. LORAZEPAM [Concomitant]
     Dosage: 1 MG, QD
  6. INSULIN [Concomitant]
  7. HALOPERIDOL [Concomitant]
     Route: 042
  8. BROMOCRIPTINE MESYLATE [Concomitant]
  9. DANTROLENE SODIUM [Concomitant]
     Route: 042

REACTIONS (1)
  - SEROTONIN SYNDROME [None]
